FAERS Safety Report 8480829-3 (Version None)
Quarter: 2012Q3

REPORT INFORMATION
  Report Type: 
  Country: None (occurrence: None)
  Receive Date: 20120702
  Receipt Date: 20120622
  Transmission Date: 20120928
  Serious: Yes (Hospitalization)
  Sender: FDA-Public Use
  Company Number: US-BAYER-2012-014290

PATIENT
  Age: 34 Year
  Sex: Female
  Weight: 94 kg

DRUGS (2)
  1. YAZ [Suspect]
     Dosage: UNK
     Dates: start: 20090101
  2. YASMIN [Suspect]
     Dosage: UNK
     Dates: start: 20090101

REACTIONS (5)
  - THROMBOSIS [None]
  - PAIN [None]
  - SWELLING [None]
  - DEEP VEIN THROMBOSIS [None]
  - HYPOAESTHESIA [None]
